FAERS Safety Report 18937787 (Version 9)
Quarter: 2022Q4

REPORT INFORMATION
  Report Type: Report from Study
  Country: US (occurrence: US)
  Receive Date: 20210224
  Receipt Date: 20221117
  Transmission Date: 20230113
  Serious: Yes (Other)
  Sender: FDA-Public Use
  Company Number: US-TAKEDA-2017BLT000163

PATIENT
  Age: 64 Year
  Sex: Female

DRUGS (2)
  1. HUMAN IMMUNOGLOBULIN G [Suspect]
     Active Substance: HUMAN IMMUNOGLOBULIN G
     Indication: Primary immunodeficiency syndrome
     Dosage: 80 GRAM, MONTHLY
     Route: 042
  2. HUMAN IMMUNOGLOBULIN G [Suspect]
     Active Substance: HUMAN IMMUNOGLOBULIN G
     Indication: Immunodeficiency common variable

REACTIONS (11)
  - Viral infection [Unknown]
  - Food allergy [Unknown]
  - Muscle atrophy [Unknown]
  - Illness [Unknown]
  - Fall [Unknown]
  - Myalgia [Unknown]
  - Asthenia [Unknown]
  - Malaise [Unknown]
  - COVID-19 [Unknown]
  - Migraine [Unknown]
  - Norovirus infection [Unknown]

NARRATIVE: CASE EVENT DATE: 20210301
